FAERS Safety Report 4584556-4 (Version None)
Quarter: 2005Q1

REPORT INFORMATION
  Report Type: 
  Country: None (occurrence: None)
  Receive Date: 20050125
  Receipt Date: 20040922
  Transmission Date: 20050727
  Serious: No
  Sender: FDA-Public Use
  Company Number: USA040979078

PATIENT
  Age: 57 Year
  Sex: Female

DRUGS (8)
  1. FORTEO [Suspect]
     Indication: OSTEOPOROSIS
     Dates: start: 20040825
  2. DEPAKOTE [Concomitant]
  3. MIZOLEN (MOZOLASTINE) [Concomitant]
  4. TRANXENE [Concomitant]
  5. AMITRIPTYLINE HCL [Concomitant]
  6. CALCIUM GLUCONATE [Concomitant]
  7. NATURAL VITAMINS [Concomitant]
  8. REGULAR VITAMINS [Concomitant]

REACTIONS (12)
  - ASTHENIA [None]
  - FEELING ABNORMAL [None]
  - HEADACHE [None]
  - HYPERSOMNIA [None]
  - MIGRAINE [None]
  - MUSCLE SPASMS [None]
  - OCULAR HYPERAEMIA [None]
  - PERSONALITY CHANGE [None]
  - SINUS HEADACHE [None]
  - SINUSITIS [None]
  - TREMOR [None]
  - VOMITING [None]
